FAERS Safety Report 5670440-1 (Version None)
Quarter: 2008Q1

REPORT INFORMATION
  Report Type: 
  Country: None (occurrence: None)
  Receive Date: 20080318
  Receipt Date: 20080304
  Transmission Date: 20080703
  Serious: Yes (Hospitalization)
  Sender: FDA-Public Use
  Company Number: ES-ELI_LILLY_AND_COMPANY-ES200803000743

PATIENT
  Age: 77 Year
  Sex: Female

DRUGS (13)
  1. FORTEO [Suspect]
     Indication: OSTEOPOROSIS
     Dosage: 20 UG, UNKNOWN
     Route: 058
     Dates: start: 20080219, end: 20080224
  2. PENTOXIFYLLINE [Concomitant]
  3. ZOLPIDEM [Concomitant]
  4. VENORUTON [Concomitant]
  5. FLUOXETINE [Concomitant]
  6. ARCOXIA [Concomitant]
  7. RIVOTRIL [Concomitant]
  8. TRANXILIUM [Concomitant]
  9. PERSANTINE [Concomitant]
  10. SIMVASTATIN [Concomitant]
  11. ORFIDAL [Concomitant]
  12. DURAGESIC-100 [Concomitant]
  13. VENTOLIN [Concomitant]

REACTIONS (2)
  - NEOPLASM [None]
  - PAIN [None]
